FAERS Safety Report 18261104 (Version 3)
Quarter: 2021Q1

REPORT INFORMATION
  Report Type: Spontaneous
  Country: JP (occurrence: JP)
  Receive Date: 20200914
  Receipt Date: 20210212
  Transmission Date: 20210419
  Serious: Yes (Death)
  Sender: FDA-Public Use
  Company Number: JP-AMGEN-JPNSP2020148684

PATIENT
  Age: 8 Decade
  Sex: Female

DRUGS (1)
  1. ROMIPLATE [Suspect]
     Active Substance: ROMIPLOSTIM
     Indication: IMMUNE THROMBOCYTOPENIA
     Dosage: 400 MICROGRAM, QWK
     Route: 058
     Dates: end: 20200904

REACTIONS (1)
  - Death [Fatal]

NARRATIVE: CASE EVENT DATE: 20200907
